FAERS Safety Report 10505799 (Version 2)
Quarter: 2014Q4

REPORT INFORMATION
  Report Type: Spontaneous
  Country: DE (occurrence: DE)
  Receive Date: 20141008
  Receipt Date: 20141110
  Transmission Date: 20150528
  Serious: Yes (Hospitalization)
  Sender: FDA-Public Use
  Company Number: PHHY2014DE129543

PATIENT
  Sex: Male

DRUGS (2)
  1. EXELON PATCH [Suspect]
     Active Substance: RIVASTIGMINE
     Indication: PRODUCT USED FOR UNKNOWN INDICATION
     Dosage: 13.3 MG, PER 24 HOURS
     Route: 062
  2. EXELON PATCH [Suspect]
     Active Substance: RIVASTIGMINE
     Dosage: 3 DF, (4.6MG/24 HOURS)
     Route: 062

REACTIONS (3)
  - Drug administration error [Unknown]
  - Pneumonia [Recovered/Resolved]
  - Confusional state [Recovering/Resolving]
